FAERS Safety Report 7888220-5 (Version None)
Quarter: 2011Q4

REPORT INFORMATION
  Report Type: 
  Country: None (occurrence: None)
  Receive Date: 20111019
  Receipt Date: 20111019
  Transmission Date: 20120403
  Serious: No
  Sender: FDA-Public Use
  Company Number: None

PATIENT

DRUGS (1)
  1. LISTERINE TOTAL CARE PLUS WHITENING [Suspect]

REACTIONS (4)
  - ORAL DISCOMFORT [None]
  - URTICARIA [None]
  - SALIVARY DUCT INFLAMMATION [None]
  - ORAL PAIN [None]
